FAERS Safety Report 4721311-6 (Version None)
Quarter: 2005Q3

REPORT INFORMATION
  Report Type: 
  Country: None (occurrence: None)
  Receive Date: 20050721
  Receipt Date: 20040611
  Transmission Date: 20060218
  Serious: Yes (Other)
  Sender: FDA-Public Use
  Company Number: US-BRISTOL-MYERS SQUIBB COMPANY-12612552

PATIENT
  Age: 75 Year
  Sex: Female
  Weight: 49 kg

DRUGS (1)
  1. COUMADIN [Suspect]
     Indication: MITRAL VALVE REPLACEMENT
     Dosage: THERAPY INITIATED OVER 5 YEARS AGO. NON-COMPLIANT: NOT TAKEN 6/9/04 SO PT TOOK 7.5MG ON 6/10.
     Route: 048

REACTIONS (2)
  - INTERNATIONAL NORMALISED RATIO DECREASED [None]
  - URINARY TRACT DISORDER [None]
